FAERS Safety Report 8209331-0 (Version None)
Quarter: 2012Q1

REPORT INFORMATION
  Report Type: 
  Country: None (occurrence: None)
  Receive Date: 20120314
  Receipt Date: 20120305
  Transmission Date: 20120608
  Serious: Yes (Hospitalization)
  Sender: FDA-Public Use
  Company Number: US-BAYER-2012-022459

PATIENT
  Age: 51 Year
  Sex: Female
  Weight: 74.376 kg

DRUGS (8)
  1. PRAVASTATIN [Concomitant]
     Dosage: 40 MG, UNK
     Route: 048
     Dates: start: 20061016
  2. ASPIRIN [Concomitant]
     Dosage: 81 MG, UNK
     Route: 048
     Dates: start: 20061016
  3. SYNTHROID [Concomitant]
     Dosage: 0.05 MG, UNK
     Route: 048
     Dates: start: 20070606
  4. CIPRO [Concomitant]
     Dosage: 500 MG, BID
     Route: 048
     Dates: start: 20070606
  5. AMOXICILLIN [Concomitant]
     Dosage: 875 MG, BID
     Route: 048
     Dates: start: 20070220
  6. METFORMIN HCL [Concomitant]
     Dosage: 500 MG, UNK
     Route: 048
     Dates: start: 20061016
  7. YASMIN [Suspect]
     Dosage: UNK
  8. AUGMENTIN '125' [Concomitant]
     Dosage: UNK UNK, BID
     Route: 048
     Dates: start: 20070717

REACTIONS (1)
  - PULMONARY EMBOLISM [None]
